FAERS Safety Report 6056224-3 (Version None)
Quarter: 2009Q1

REPORT INFORMATION
  Report Type: 
  Country: None (occurrence: None)
  Receive Date: 20090129
  Receipt Date: 20090108
  Transmission Date: 20090719
  Serious: Yes (Hospitalization, Other)
  Sender: FDA-Public Use
  Company Number: CA-PFIZER INC-2009152673

PATIENT

DRUGS (9)
  1. PREGABALIN [Suspect]
     Indication: OSTEOARTHRITIS
     Dosage: 50 MG, 1X/DAY
  2. OMEPRAZOLE [Concomitant]
     Dosage: 20 MG, 1X/DAY
  3. CALCIUM CARBONATE [Concomitant]
     Dosage: 500 MG, 1X/DAY
  4. VITAMIN D [Concomitant]
     Dosage: 400 IU, 1X/DAY
  5. CELECOXIB [Concomitant]
     Indication: ARTHRITIS
     Dosage: 100 MG, UNK
  6. ETIDRONATE DISODIUM [Concomitant]
     Dosage: 400 MG, 1X/DAY
  7. ADVAIR DISKUS 100/50 [Concomitant]
     Dosage: UNK
  8. ACETAMINOPHEN [Concomitant]
     Dosage: UNK
  9. IBUPROFEN [Concomitant]
     Dosage: 400 MG, SINGLE

REACTIONS (3)
  - CHRONIC OBSTRUCTIVE PULMONARY DISEASE [None]
  - THROMBOCYTOPENIA [None]
  - URINARY TRACT INFECTION [None]
